FAERS Safety Report 10423551 (Version 1)
Quarter: 2014Q3

REPORT INFORMATION
  Report Type: Spontaneous
  Country: US (occurrence: US)
  Receive Date: 20140902
  Receipt Date: 20140902
  Transmission Date: 20150326
  Serious: Yes (Hospitalization, Other)
  Sender: FDA-Public Use
  Company Number: US-JNJFOC-20140823984

PATIENT
  Sex: Male

DRUGS (1)
  1. DURAGESIC [Suspect]
     Active Substance: FENTANYL
     Indication: PRODUCT USED FOR UNKNOWN INDICATION
     Route: 062
     Dates: start: 2002

REACTIONS (11)
  - Investigation [Unknown]
  - Intervertebral disc disorder [Unknown]
  - Feeling abnormal [Unknown]
  - Screaming [Unknown]
  - Impaired work ability [Unknown]
  - Drug dose omission [Unknown]
  - Memory impairment [Unknown]
  - Drug dependence [Unknown]
  - Depressed level of consciousness [Recovered/Resolved]
  - Cardiac disorder [Unknown]
  - Back pain [Unknown]

NARRATIVE: CASE EVENT DATE: 2002
